FAERS Safety Report 8523507-4 (Version None)
Quarter: 2012Q3

REPORT INFORMATION
  Report Type: 
  Country: None (occurrence: None)
  Receive Date: 20120716
  Receipt Date: 20120716
  Transmission Date: 20120928
  Serious: Yes (Other)
  Sender: FDA-Public Use
  Company Number: None

PATIENT
  Age: 19 Year
  Sex: Female
  Weight: 63.5036 kg

DRUGS (1)
  1. ACCUTANE [Suspect]
     Dosage: 1 PILL EVERY 2 DAYS PO
     Route: 048

REACTIONS (10)
  - PERSONALITY CHANGE [None]
  - PARANOIA [None]
  - DEPRESSION [None]
  - MANIA [None]
  - SUICIDAL IDEATION [None]
  - FEAR [None]
  - BIPOLAR DISORDER [None]
  - DISTURBANCE IN ATTENTION [None]
  - MEMORY IMPAIRMENT [None]
  - MOOD SWINGS [None]
